FAERS Safety Report 6874699-4 (Version None)
Quarter: 2010Q3

REPORT INFORMATION
  Report Type: 
  Country: None (occurrence: None)
  Receive Date: 20100722
  Receipt Date: 20100715
  Transmission Date: 20110219
  Serious: Yes (Other)
  Sender: FDA-Public Use
  Company Number: RB-13133-2010

PATIENT
  Age: 47 Year
  Sex: Female

DRUGS (1)
  1. SUBOXONE [Suspect]
     Indication: PRODUCT USED FOR UNKNOWN INDICATION

REACTIONS (8)
  - ANXIETY [None]
  - DYSPEPSIA [None]
  - HALLUCINATION [None]
  - HEADACHE [None]
  - IMPAIRED DRIVING ABILITY [None]
  - INSOMNIA [None]
  - NERVOUSNESS [None]
  - WITHDRAWAL SYNDROME [None]
